FAERS Safety Report 8808450 (Version 2)
Quarter: 2012Q4

REPORT INFORMATION
  Report Type: 
  Country: US (occurrence: US)
  Receive Date: 20120926
  Receipt Date: 20121016
  Transmission Date: 20130627
  Serious: No
  Sender: FDA-Public Use
  Company Number: US-PFIZER INC-2012235101

PATIENT
  Age: 18 Year
  Sex: Male
  Weight: 84 kg

DRUGS (14)
  1. BENZYLPENICILLIN POTASSIUM [Suspect]
     Dosage: UNK
  2. ASPIRIN [Concomitant]
     Indication: BACK PAIN
     Dosage: 325 mg, daily
  3. TYLENOL [Concomitant]
     Indication: BACK PAIN
     Dosage: 600 mg, daily
  4. OXYBUTYNIN [Concomitant]
     Indication: DYSURIA
     Dosage: 5 mg, thrice daily
  5. JANUVIA [Concomitant]
     Dosage: 100 mg, daily
  6. LANTUS SOLOSTAR [Concomitant]
     Dosage: 25 units, daily
  7. FERREX [Concomitant]
     Dosage: 150 mg, twice daily
  8. DIGOXIN [Concomitant]
     Dosage: 0.25 mg, daily
     Route: 048
  9. NABUMETONE [Concomitant]
     Dosage: 500 mg, twice daily
     Route: 048
  10. RAMIPRIL [Concomitant]
     Dosage: 2.5 mg, daily
  11. METOPROLOL SUCCINATE [Concomitant]
     Dosage: 25 mg, daily
     Route: 048
  12. VERAPAMIL HYDROCHLORIDE [Concomitant]
     Dosage: 180 mg, daily
     Route: 048
  13. GABAPENTIN [Concomitant]
     Dosage: 300 mg, twice daily
     Route: 048
  14. NOVOLOG [Concomitant]
     Dosage: 8 units, daily

REACTIONS (1)
  - Hypersensitivity [Unknown]
